FAERS Safety Report 6055521-5 (Version None)
Quarter: 2009Q1

REPORT INFORMATION
  Report Type: 
  Country: None (occurrence: None)
  Receive Date: 20090128
  Receipt Date: 20090123
  Transmission Date: 20090719
  Serious: Yes (Death)
  Sender: FDA-Public Use
  Company Number: A0765495A

PATIENT
  Age: 87 Year
  Sex: Female
  Weight: 50 kg

DRUGS (1)
  1. AVANDAMET [Suspect]
     Route: 048
     Dates: start: 20080930, end: 20081230

REACTIONS (4)
  - CHRONIC OBSTRUCTIVE PULMONARY DISEASE [None]
  - DIABETES MELLITUS [None]
  - MULTI-ORGAN FAILURE [None]
  - SEPSIS [None]
